FAERS Safety Report 21262128 (Version 1)
Quarter: 2022Q3

REPORT INFORMATION
  Report Type: Report from Study
  Country: IT (occurrence: IT)
  Receive Date: 20220827
  Receipt Date: 20220827
  Transmission Date: 20221026
  Serious: Yes (Death, Hospitalization)
  Sender: FDA-Public Use
  Company Number: IT-ABBVIE-22K-083-4519137-00

PATIENT
  Age: 76 Year
  Sex: Female

DRUGS (2)
  1. CARBIDOPA\LEVODOPA [Suspect]
     Active Substance: CARBIDOPA\LEVODOPA
     Indication: Parkinson^s disease
     Dosage: DAILY DOSE: 892 MG; PUMP SETTING: MD: 1+3 CR: 3,3 (12H), ED: 2 20 MG/ML 5 MG/ML GEL
     Route: 050
     Dates: start: 20210209, end: 20220823
  2. CARBIDOPA\LEVODOPA [Suspect]
     Active Substance: CARBIDOPA\LEVODOPA

REACTIONS (2)
  - Pneumonia [Fatal]
  - General physical health deterioration [Fatal]

NARRATIVE: CASE EVENT DATE: 20220801
